FAERS Safety Report 16287239 (Version 1)
Quarter: 2019Q2

REPORT INFORMATION
  Report Type: Spontaneous
  Country: BE (occurrence: BE)
  Receive Date: 20190508
  Receipt Date: 20190508
  Transmission Date: 20190711
  Serious: Yes (Hospitalization, Disabling)
  Sender: FDA-Public Use
  Company Number: BE-BAUSCH-BL-2019-012959

PATIENT
  Age: 76 Year
  Sex: Female
  Weight: 51 kg

DRUGS (4)
  1. ALDARA [Suspect]
     Active Substance: IMIQUIMOD
     Indication: KERATITIS
     Route: 003
     Dates: start: 20180612
  2. TOTALIP [Concomitant]
     Active Substance: ATORVASTATIN
     Indication: PRODUCT USED FOR UNKNOWN INDICATION
  3. DONEPEZIL. [Concomitant]
     Active Substance: DONEPEZIL
     Indication: PRODUCT USED FOR UNKNOWN INDICATION
  4. PERAMTEVA [Concomitant]
     Indication: PRODUCT USED FOR UNKNOWN INDICATION

REACTIONS (6)
  - Disorientation [Recovering/Resolving]
  - Confusional state [Recovering/Resolving]
  - Impaired self-care [Recovering/Resolving]
  - Headache [Recovering/Resolving]
  - Cognitive disorder [Recovering/Resolving]
  - Agitation [Recovering/Resolving]

NARRATIVE: CASE EVENT DATE: 20180619
